FAERS Safety Report 17970837 (Version 1)
Quarter: 2020Q3

REPORT INFORMATION
  Report Type: Spontaneous
  Country: DK (occurrence: DK)
  Receive Date: 20200701
  Receipt Date: 20200701
  Transmission Date: 20201103
  Serious: Yes (Life-Threatening, Hospitalization, Disabling, Other)
  Sender: FDA-Public Use
  Company Number: DK-BRISTOL-MYERS SQUIBB COMPANY-BMS-2020-051881

PATIENT
  Age: 57 Year
  Sex: Male
  Weight: 95.6 kg

DRUGS (4)
  1. DOMPERIDON [DOMPERIDONE] [Concomitant]
     Indication: NAUSEA
     Dosage: 30 MILLIGRAM, QD
     Route: 048
     Dates: start: 20190920
  2. OPDIVO [Suspect]
     Active Substance: NIVOLUMAB
     Indication: RENAL CANCER METASTATIC
     Dosage: 240 MILLIGRAM {TOTAL}
     Route: 042
     Dates: start: 20190920
  3. YERVOY [Suspect]
     Active Substance: IPILIMUMAB
     Indication: RENAL CANCER METASTATIC
     Dosage: 95.6 MILLIGRAM {TOTAL}
     Route: 042
     Dates: start: 20190920
  4. CETIRIZIN TEVA [Concomitant]
     Indication: PRODUCT USED FOR UNKNOWN INDICATION
     Dosage: UNK
     Route: 048

REACTIONS (6)
  - Hypophysitis [Recovered/Resolved]
  - Hepatitis [Recovered/Resolved]
  - Myositis [Recovered/Resolved]
  - Prescribed underdose [Unknown]
  - Headache [Unknown]
  - Myocarditis [Recovered/Resolved]

NARRATIVE: CASE EVENT DATE: 20191002
